FAERS Safety Report 5505096-1 (Version None)
Quarter: 2007Q4

REPORT INFORMATION
  Report Type: 
  Country: None (occurrence: None)
  Receive Date: 20071031
  Receipt Date: 20071031
  Transmission Date: 20080405
  Serious: Yes (Death)
  Sender: FDA-Public Use
  Company Number: None

PATIENT
  Sex: Male

DRUGS (3)
  1. FLUDARABINE PHOSPHATE [Suspect]
     Indication: STEM CELL TRANSPLANT
     Dosage: 63 MG  DAILY  IV DRIP
     Route: 041
     Dates: start: 20060728, end: 20060801
  2. CAMPATH [Suspect]
     Indication: STEM CELL TRANSPLANT
     Dosage: 20 MG DAILY IV DRIP
     Route: 041
     Dates: start: 20060728, end: 20060801
  3. MELPHALAN [Suspect]
     Dosage: 294 MG DAILY IV DRIP
     Route: 041
     Dates: start: 20060802, end: 20060802

REACTIONS (4)
  - BACTERIAL INFECTION [None]
  - BLOOD CULTURE POSITIVE [None]
  - BRONCHOPULMONARY ASPERGILLOSIS [None]
  - FEBRILE NEUTROPENIA [None]
